FAERS Safety Report 5229849-2 (Version None)
Quarter: 2007Q1

REPORT INFORMATION
  Report Type: 
  Country: None (occurrence: None)
  Receive Date: 20070206
  Receipt Date: 20060824
  Transmission Date: 20070707
  Serious: No
  Sender: FDA-Public Use
  Company Number: US-GLAXOSMITHKLINE-A0559056A

PATIENT
  Sex: Female

DRUGS (3)
  1. PAXIL [Suspect]
     Indication: ANXIETY
     Route: 048
  2. LOTREL [Concomitant]
  3. ZOLOFT [Concomitant]

REACTIONS (1)
  - DRUG WITHDRAWAL SYNDROME [None]
